FAERS Safety Report 17446927 (Version 2)
Quarter: 2020Q1

REPORT INFORMATION
  Report Type: Report from Study
  Country: DE (occurrence: DE)
  Receive Date: 20200221
  Receipt Date: 20200320
  Transmission Date: 20200409
  Serious: Yes (Other)
  Sender: FDA-Public Use
  Company Number: DE-MYLANLABS-2019M1127749

PATIENT
  Age: 48 Year
  Sex: Female
  Weight: 76 kg

DRUGS (4)
  1. KISQALI [Suspect]
     Active Substance: RIBOCICLIB
     Indication: BREAST CANCER METASTATIC
     Dosage: 600 MG, DAILY
     Route: 048
     Dates: start: 20190627
  2. KISQALI [Suspect]
     Active Substance: RIBOCICLIB
     Dosage: UNK
     Route: 048
     Dates: start: 20190801
  3. FULVESTRANT. [Suspect]
     Active Substance: FULVESTRANT
     Indication: BREAST CANCER METASTATIC
     Dosage: 250 MG,DAILY DOSE,EVERY FOUR WEEKS
     Route: 042
     Dates: start: 20190627
  4. CAPECITABINE. [Suspect]
     Active Substance: CAPECITABINE
     Indication: BREAST CANCER METASTATIC
     Dosage: 500 MG (4 IN THE MORNING AND 4 IN THE EVENING)
     Route: 065
     Dates: start: 20191112

REACTIONS (8)
  - Nausea [Unknown]
  - General physical health deterioration [Unknown]
  - Malignant neoplasm progression [Not Recovered/Not Resolved]
  - Breast cancer metastatic [Not Recovered/Not Resolved]
  - Leukopenia [Not Recovered/Not Resolved]
  - Pain in extremity [Unknown]
  - Hyperhidrosis [Recovered/Resolved]
  - Vomiting [Unknown]

NARRATIVE: CASE EVENT DATE: 20190725
